FAERS Safety Report 10229580 (Version 1)
Quarter: 2014Q2

REPORT INFORMATION
  Report Type: Report from Study
  Country: DE (occurrence: None)
  Receive Date: 20140609
  Receipt Date: 20140609
  Transmission Date: 20141212
  Serious: Yes (Hospitalization)
  Sender: FDA-Public Use
  Company Number: 2373445

PATIENT
  Age: 78 Year
  Sex: Female

DRUGS (14)
  1. GEMCITABINE HYDROCHLORIDE [Suspect]
     Indication: BLADDER CANCER
     Route: 041
     Dates: start: 20140319, end: 20140409
  2. CISPLATIN [Suspect]
     Route: 042
     Dates: start: 20140319, end: 20140409
  3. ATORVASTATIN [Concomitant]
  4. TAIPROFENIC ACID [Concomitant]
  5. PANTOPRAZOLE SODIUM [Concomitant]
  6. PREDNISOLONE [Concomitant]
  7. RHEUM PALMATUM [Concomitant]
  8. ACEYTLSALICYLIC ACID [Concomitant]
  9. ONDANSETRON HYDROCHLORIDE [Concomitant]
  10. APREPITANT [Concomitant]
  11. DEXAMETHASONE [Concomitant]
  12. CORTISONE ACETATE [Concomitant]
  13. AMPHOTERICIN B [Concomitant]
  14. MOVICOL/01749801/) [Concomitant]

REACTIONS (10)
  - Abdominal pain upper [None]
  - Diarrhoea [None]
  - Atrioventricular block first degree [None]
  - Gastroenteritis [None]
  - Vaginal discharge [None]
  - Lymphocele [None]
  - Pyrexia [None]
  - Female genital tract fistula [None]
  - Urosepsis [None]
  - Escherichia test positive [None]
